FAERS Safety Report 13648781 (Version 1)
Quarter: 2017Q2

REPORT INFORMATION
  Report Type: Spontaneous
  Country: FR (occurrence: FR)
  Receive Date: 20170613
  Receipt Date: 20170613
  Transmission Date: 20170830
  Serious: Yes (Other)
  Sender: FDA-Public Use
  Company Number: FR-PFIZER INC-2017248627

PATIENT
  Age: 24 Year
  Sex: Male

DRUGS (10)
  1. ZITHROMAX [Suspect]
     Active Substance: AZITHROMYCIN DIHYDRATE
     Dosage: UNK
     Dates: end: 20170306
  2. MOPRAL [Suspect]
     Active Substance: OMEPRAZOLE SODIUM
     Dosage: UNK
     Dates: end: 20170306
  3. CREON [Concomitant]
     Active Substance: PANCRELIPASE AMYLASE\PANCRELIPASE LIPASE\PANCRELIPASE PROTEASE
     Dosage: UNK
  4. ORKAMBI [Suspect]
     Active Substance: IVACAFTOR\LUMACAFTOR
     Indication: CYSTIC FIBROSIS
     Dosage: 2 DF, 2X/DAY
     Route: 048
     Dates: start: 20161013, end: 20170306
  5. TOBI [Suspect]
     Active Substance: TOBRAMYCIN
     Dosage: UNK
  6. TOCO [Concomitant]
     Active Substance: UNSPECIFIED INGREDIENT
     Dosage: UNK
  7. UVEDOSE [Concomitant]
     Active Substance: CHOLECALCIFEROL
     Dosage: UNK
  8. SERETIDE [Suspect]
     Active Substance: FLUTICASONE PROPIONATE\SALMETEROL XINAFOATE
     Dosage: UNK
  9. XYZALL [Suspect]
     Active Substance: LEVOCETIRIZINE DIHYDROCHLORIDE
     Dosage: UNK
     Dates: end: 20170306
  10. DELURSAN [Concomitant]
     Active Substance: URSODIOL
     Dosage: UNK

REACTIONS (8)
  - Myalgia [Recovered/Resolved]
  - Activated partial thromboplastin time prolonged [Recovered/Resolved]
  - Blood creatine phosphokinase increased [Recovering/Resolving]
  - Haemoptysis [Recovered/Resolved]
  - Prothrombin time ratio increased [Recovered/Resolved]
  - Prothrombin level decreased [Recovered/Resolved]
  - Cough [Recovering/Resolving]
  - Transaminases increased [Recovering/Resolving]

NARRATIVE: CASE EVENT DATE: 201703
